FAERS Safety Report 22659255 (Version 1)
Quarter: 2023Q2

REPORT INFORMATION
  Report Type: Spontaneous
  Country: US (occurrence: None)
  Receive Date: 20230629
  Receipt Date: 20230629
  Transmission Date: 20230722
  Serious: Yes (Life-Threatening, Hospitalization, Other)
  Sender: FDA-Public Use
  Company Number: None

PATIENT
  Age: 73 Year
  Sex: Male
  Weight: 143 kg

DRUGS (6)
  1. VANCOMYCIN [Suspect]
     Active Substance: VANCOMYCIN
     Indication: Wound infection
     Dosage: OTHER FREQUENCY : ONCE;?
     Route: 042
     Dates: start: 20230628, end: 20230628
  2. SODIUM CHLORIDE [Concomitant]
     Active Substance: SODIUM CHLORIDE
     Dates: start: 20230628, end: 20230628
  3. AMLODIPINE [Concomitant]
     Active Substance: AMLODIPINE BESYLATE
  4. FUROSEMIDE [Concomitant]
     Active Substance: FUROSEMIDE
  5. LOSARTAN [Concomitant]
     Active Substance: LOSARTAN
  6. VITAMINS [Concomitant]
     Active Substance: VITAMINS

REACTIONS (3)
  - Tachycardia [None]
  - Ventricular tachycardia [None]
  - Infusion related reaction [None]

NARRATIVE: CASE EVENT DATE: 20230628
